FAERS Safety Report 5121640-0 (Version None)
Quarter: 2006Q4

REPORT INFORMATION
  Report Type: 
  Country: None (occurrence: None)
  Receive Date: 20061003
  Receipt Date: 20060925
  Transmission Date: 20070319
  Serious: Yes (Hospitalization, Other)
  Sender: FDA-Public Use
  Company Number: DEWYE743921AUG06

PATIENT
  Age: 37 Year
  Sex: Male

DRUGS (7)
  1. TREVILOR RETARD (VENLAFAXINE HYDROCHLORIDE, CAPSUE, EXTENDED RELEASE, [Suspect]
     Dosage: 20 CAPSULES (OVERDOSE AMOUNT 3000 MG) ORAL
     Route: 048
     Dates: start: 20060817, end: 20060817
  2. ALCOHOL (ETHANOL, , 0) [Suspect]
     Dosage: ORAL
     Route: 048
     Dates: start: 20060817, end: 20060817
  3. AMITRIPTYLINE HCL [Suspect]
     Dosage: ORAL
     Route: 048
     Dates: start: 20060817, end: 20060817
  4. CLOMIPRAMINE (CLOMIPRAMINE, , 0) [Suspect]
     Dosage: ORAL
     Route: 048
     Dates: start: 20060817, end: 20060817
  5. REBOXETINE (REBOXETINE, , 0) [Suspect]
     Dosage: ORAL
     Route: 048
     Dates: start: 20060817, end: 20060817
  6. LORAZEPAM [Suspect]
     Dosage: ORAL
     Route: 048
     Dates: start: 20060817, end: 20060817
  7. TILIDINE (TILIDINE, , 0) [Suspect]
     Dosage: ORAL
     Route: 048
     Dates: start: 20060817, end: 20060817

REACTIONS (10)
  - BLOOD CREATINE PHOSPHOKINASE INCREASED [None]
  - BLOOD GASES ABNORMAL [None]
  - HEPATIC ENZYME INCREASED [None]
  - INTENTIONAL OVERDOSE [None]
  - PNEUMONIA PRIMARY ATYPICAL [None]
  - RHABDOMYOLYSIS [None]
  - SOMNOLENCE [None]
  - SUICIDE ATTEMPT [None]
  - TACHYCARDIA [None]
  - VOMITING [None]
